FAERS Safety Report 8334375-8 (Version None)
Quarter: 2012Q2

REPORT INFORMATION
  Report Type: 
  Country: None (occurrence: None)
  Receive Date: 20120503
  Receipt Date: 20120423
  Transmission Date: 20120825
  Serious: Yes (Other)
  Sender: FDA-Public Use
  Company Number: DE-ELI_LILLY_AND_COMPANY-DE201204008456

PATIENT
  Age: 70 Year
  Sex: Male

DRUGS (2)
  1. BETA BLOCKING AGENTS [Concomitant]
     Dosage: UNK
     Dates: start: 20100101
  2. CIALIS [Suspect]
     Indication: ERECTILE DYSFUNCTION
     Dosage: 5 MG, QD
     Route: 048

REACTIONS (1)
  - PENILE CURVATURE [None]
